FAERS Safety Report 5216006-9 (Version None)
Quarter: 2007Q1

REPORT INFORMATION
  Report Type: 
  Country: None (occurrence: None)
  Receive Date: 20061122
  Receipt Date: 20060329
  Transmission Date: 20070707
  Serious: Yes (Hospitalization, Other)
  Sender: FDA-Public Use
  Company Number: 2006043593

PATIENT
  Age: 66 Year
  Sex: Female
  Weight: 68.4932 kg

DRUGS (3)
  1. LIPITOR [Suspect]
     Indication: BLOOD CHOLESTEROL INCREASED
     Dosage: 10 MG (10 MG, 1 IN 1 D), ORAL
     Route: 048
     Dates: start: 20030101, end: 20060127
  2. CARDIZEM [Suspect]
     Indication: ATRIAL FIBRILLATION
     Dates: end: 20040101
  3. ASPIRIN [Concomitant]

REACTIONS (12)
  - ABDOMINAL PAIN [None]
  - BENIGN COLONIC NEOPLASM [None]
  - BLOOD CHOLESTEROL INCREASED [None]
  - CARDIAC DISORDER [None]
  - COLITIS ULCERATIVE [None]
  - CROHN'S DISEASE [None]
  - DENTAL DISCOMFORT [None]
  - DIZZINESS [None]
  - HAEMATURIA [None]
  - LARGE INTESTINAL ULCER [None]
  - PAIN IN EXTREMITY [None]
  - TOOTH ABSCESS [None]
